FAERS Safety Report 6601845-X (Version None)
Quarter: 2010Q1

REPORT INFORMATION
  Report Type: 
  Country: None (occurrence: None)
  Receive Date: 20100218
  Receipt Date: 20100208
  Transmission Date: 20100710
  Serious: Yes (Hospitalization)
  Sender: FDA-Public Use
  Company Number: WAES 1002USA00417

PATIENT
  Age: 56 Year
  Sex: Male

DRUGS (6)
  1. CLINORIL [Suspect]
     Indication: BACK PAIN
     Dosage: 200 MG/BID, PO
     Route: 048
     Dates: start: 20100107
  2. TARCEVA [Suspect]
     Indication: NON-SMALL CELL LUNG CANCER
     Dosage: 150 MG/DAILY
     Dates: start: 20090916
  3. ULTRACET [Concomitant]
  4. BACITRACIN (+) NEOMYCIN SULFATE [Concomitant]
  5. CODEINE SULFATE [Concomitant]
  6. ESTAZAOLAM [Concomitant]

REACTIONS (11)
  - BACK PAIN [None]
  - CONDITION AGGRAVATED [None]
  - DYSPNOEA [None]
  - GASTRIC ULCER [None]
  - GASTRITIS EROSIVE [None]
  - GASTROINTESTINAL HAEMORRHAGE [None]
  - HAEMOGLOBIN DECREASED [None]
  - MELAENA [None]
  - OSTEOMYELITIS [None]
  - SEPSIS [None]
  - STAPHYLOCOCCAL INFECTION [None]
